FAERS Safety Report 10046238 (Version 1)
Quarter: 2014Q1

REPORT INFORMATION
  Report Type: Spontaneous
  Country: DE (occurrence: DE)
  Receive Date: 20140331
  Receipt Date: 20140331
  Transmission Date: 20141002
  Serious: Yes (Other)
  Sender: FDA-Public Use
  Company Number: DE-RANBAXY-2014RR-79279

PATIENT
  Age: 44 Year
  Sex: Male

DRUGS (4)
  1. SERTRALIN BASICS 50MG FILMTABLETTEN [Suspect]
     Indication: PANIC DISORDER
     Dosage: 25 MG, DAILY
     Route: 065
     Dates: end: 20140311
  2. SERTRALIN BASICS 50MG FILMTABLETTEN [Suspect]
     Indication: COMPULSIONS
  3. SERTRALIN BASICS 50MG FILMTABLETTEN [Suspect]
     Indication: PHOBIA
  4. SERTRALIN BASICS 50MG FILMTABLETTEN [Suspect]
     Indication: AGITATION

REACTIONS (6)
  - Dizziness [Unknown]
  - Eye movement disorder [Unknown]
  - Headache [Unknown]
  - Nasopharyngitis [Unknown]
  - Cough [Unknown]
  - Pyrexia [Unknown]
